FAERS Safety Report 4746979-X (Version None)
Quarter: 2005Q3

REPORT INFORMATION
  Report Type: 
  Country: None (occurrence: None)
  Receive Date: 20050817
  Receipt Date: 20050808
  Transmission Date: 20060218
  Serious: Yes (Hospitalization)
  Sender: FDA-Public Use
  Company Number: PHNU2005DE02820

PATIENT
  Age: 62 Year
  Sex: Female
  Weight: 70 kg

DRUGS (1)
  1. ZOMETA [Suspect]
     Indication: METASTASES TO BONE
     Dosage: 4 MG, QMO

REACTIONS (4)
  - ASEPTIC NECROSIS BONE [None]
  - IMPAIRED HEALING [None]
  - TOOTH EXTRACTION [None]
  - WOUND DEBRIDEMENT [None]
